FAERS Safety Report 7276578-X (Version None)
Quarter: 2011Q1

REPORT INFORMATION
  Report Type: 
  Country: None (occurrence: None)
  Receive Date: 20110204
  Receipt Date: 20110201
  Transmission Date: 20110831
  Serious: Yes (Other)
  Sender: FDA-Public Use
  Company Number: PL-GILEAD-2011-0035996

PATIENT
  Age: 20 Year
  Sex: Female

DRUGS (3)
  1. TRUVADA [Suspect]
     Indication: HIV INFECTION
     Dates: start: 20091103
  2. REYATAZ [Concomitant]
     Indication: HIV INFECTION
     Dates: start: 20091103
  3. NORVIR [Concomitant]
     Indication: HIV INFECTION
     Dates: start: 20091103

REACTIONS (1)
  - WHITE BLOOD CELL COUNT DECREASED [None]
